FAERS Safety Report 8940212 (Version 1)
Quarter: 2012Q4

REPORT INFORMATION
  Report Type: Report from Study
  Country: US (occurrence: US)
  Receive Date: 20121130
  Receipt Date: 20121130
  Transmission Date: 20130627
  Serious: Yes (Other)
  Sender: FDA-Public Use
  Company Number: US-ABBOTT-12P-163-1014106-00

PATIENT
  Age: 36 Year
  Sex: Female
  Weight: 89.89 kg

DRUGS (5)
  1. HUMIRA [Suspect]
     Indication: CROHN^S DISEASE
     Dates: start: 20120812, end: 20120925
  2. HUMIRA [Suspect]
     Dates: start: 20121002, end: 20121029
  3. PRENATAL VITAMINS [Concomitant]
     Indication: PRODUCT USED FOR UNKNOWN INDICATION
     Route: 048
     Dates: start: 20120926, end: 20121029
  4. AZATHIOPRINE [Concomitant]
     Indication: CROHN^S DISEASE
     Route: 048
     Dates: start: 20120812, end: 20121001
  5. TUMS [Concomitant]
     Indication: DYSPEPSIA
     Dates: start: 20120812, end: 20121029

REACTIONS (4)
  - Abortion spontaneous [Unknown]
  - Dyspepsia [Unknown]
  - Vaginal haemorrhage [Unknown]
  - Vaginal haemorrhage [Unknown]
